FAERS Safety Report 5846188-7 (Version None)
Quarter: 2008Q3

REPORT INFORMATION
  Report Type: 
  Country: None (occurrence: None)
  Receive Date: 20080813
  Receipt Date: 20080731
  Transmission Date: 20090109
  Serious: Yes (Hospitalization)
  Sender: FDA-Public Use
  Company Number: 2008AL002863

PATIENT
  Age: 70 Year
  Sex: Male
  Weight: 75.2971 kg

DRUGS (14)
  1. DIGOXIN [Suspect]
     Indication: ARRHYTHMIA
     Dosage: 0.25MG, QD, PO
     Route: 048
     Dates: start: 20061101
  2. METFORMIN HCL [Concomitant]
  3. AMARYL [Concomitant]
  4. NORVASC [Concomitant]
  5. PRINIVIL [Concomitant]
  6. OXYCODONE HCL-ACETAMINOPHEN [Concomitant]
  7. ULTRAM [Concomitant]
  8. LASIX [Concomitant]
  9. TERAZOSIN HCL [Concomitant]
  10. PROVENTIL [Concomitant]
  11. PREVACID [Concomitant]
  12. OXYCODONE HCL [Concomitant]
  13. HYDROCHLOROTHIAZIDE [Concomitant]
  14. ADVAIR DISKUS 100/50 [Concomitant]

REACTIONS (8)
  - ARTHRALGIA [None]
  - BACK INJURY [None]
  - CARDIAC FAILURE CONGESTIVE [None]
  - EXTRASYSTOLES [None]
  - JOINT EFFUSION [None]
  - PALPITATIONS [None]
  - PNEUMONIA [None]
  - SOMNOLENCE [None]
